FAERS Safety Report 19146457 (Version 5)
Quarter: 2021Q2

REPORT INFORMATION
  Report Type: Spontaneous
  Country: US (occurrence: US)
  Receive Date: 20210416
  Receipt Date: 20210527
  Transmission Date: 20210717
  Serious: No
  Sender: FDA-Public Use
  Company Number: US-JNJFOC-20210423550

PATIENT
  Sex: Female

DRUGS (2)
  1. RISPERDAL [Suspect]
     Active Substance: RISPERIDONE
     Indication: BIPOLAR DISORDER
     Dosage: DOSE: 1.00 MG/ML
     Route: 048
  2. RISPERDAL [Suspect]
     Active Substance: RISPERIDONE
     Route: 048

REACTIONS (5)
  - Psychomotor hyperactivity [Unknown]
  - Device delivery system issue [Unknown]
  - Therapeutic response increased [Unknown]
  - Product container issue [Unknown]
  - Insomnia [Unknown]
